FAERS Safety Report 14178405 (Version 1)
Quarter: 2017Q4

REPORT INFORMATION
  Report Type: Report from Study
  Country: US (occurrence: US)
  Receive Date: 20171110
  Receipt Date: 20171110
  Transmission Date: 20180321
  Serious: No
  Sender: FDA-Public Use
  Company Number: US-ACADIA PHARMACEUTICALS INC.-ACA-2017-005536

PATIENT
  Sex: Female

DRUGS (1)
  1. NUPLAZID [Suspect]
     Active Substance: PIMAVANSERIN TARTRATE
     Indication: PARKINSON^S DISEASE PSYCHOSIS
     Dosage: 34 MG, QD
     Route: 048
     Dates: start: 20170823

REACTIONS (20)
  - Musculoskeletal stiffness [Unknown]
  - Pharyngeal oedema [Unknown]
  - Dizziness [Unknown]
  - Chest discomfort [Unknown]
  - Speech disorder [Unknown]
  - Dysphonia [Unknown]
  - Abdominal discomfort [Unknown]
  - Decreased appetite [Unknown]
  - Confusional state [Unknown]
  - Heart rate increased [Unknown]
  - Mobility decreased [Unknown]
  - Throat tightness [Unknown]
  - Constipation [Unknown]
  - Gait disturbance [Unknown]
  - Panic attack [Unknown]
  - Asthenia [Unknown]
  - Feeling abnormal [Unknown]
  - Depression [Unknown]
  - Swollen tongue [Unknown]
  - Hallucination [Not Recovered/Not Resolved]
